FAERS Safety Report 6317139-6 (Version None)
Quarter: 2009Q3

REPORT INFORMATION
  Report Type: 
  Country: None (occurrence: None)
  Receive Date: 20090819
  Receipt Date: 20090806
  Transmission Date: 20100115
  Serious: Yes (Hospitalization)
  Sender: FDA-Public Use
  Company Number: 238761K09USA

PATIENT
  Age: 56 Year
  Sex: Female
  Weight: 62 kg

DRUGS (6)
  1. REBIF [Suspect]
     Indication: MULTIPLE SCLEROSIS
     Dosage: 22 MCG, 3 IN 1 WEEKS, SUBCUTANEOUS
     Route: 058
     Dates: start: 20080625
  2. PREDNISONE (PREDNISONE /00044701/) [Concomitant]
  3. PREMARIN [Concomitant]
  4. ESTERIFIED ESTROGENS AND METHYLTESTOSTERONE (ESTRATEST HS) [Concomitant]
  5. ZOCOR [Concomitant]
  6. DECADRON (DEXAMETHASONE /00016001/) [Concomitant]

REACTIONS (8)
  - ASTHENIA [None]
  - CHILLS [None]
  - DIVERTICULAR PERFORATION [None]
  - FEMALE GENITAL TRACT FISTULA [None]
  - INJECTION SITE ERYTHEMA [None]
  - INJECTION SITE PAIN [None]
  - RECTAL ABSCESS [None]
  - WEIGHT DECREASED [None]
